FAERS Safety Report 10149623 (Version 1)
Quarter: 2014Q2

REPORT INFORMATION
  Report Type: Spontaneous
  Country: US (occurrence: US)
  Receive Date: 20140502
  Receipt Date: 20140502
  Transmission Date: 20141212
  Serious: No
  Sender: FDA-Public Use
  Company Number: US-PFIZER INC-2014116554

PATIENT
  Age: 55 Year
  Sex: Female
  Weight: 69.39 kg

DRUGS (2)
  1. AZULFIDINE EN-TABS [Suspect]
     Indication: OSTEOARTHRITIS
     Dosage: 500 MG, 2X/DAY
     Dates: start: 20140129
  2. AZULFIDINE EN-TABS [Suspect]
     Indication: COLITIS ULCERATIVE
     Dosage: UNK
     Dates: start: 201402

REACTIONS (3)
  - Nausea [Recovering/Resolving]
  - Vomiting [Recovered/Resolved]
  - Intentional underdose [Unknown]
